FAERS Safety Report 7392770-8 (Version None)
Quarter: 2011Q2

REPORT INFORMATION
  Report Type: 
  Country: None (occurrence: None)
  Receive Date: 20110404
  Receipt Date: 20110401
  Transmission Date: 20111010
  Serious: Yes (Other)
  Sender: FDA-Public Use
  Company Number: KR-PFIZER INC-2011073529

PATIENT

DRUGS (1)
  1. CADUET [Suspect]
     Route: 048

REACTIONS (3)
  - DIZZINESS [None]
  - MENTAL DISORDER [None]
  - BALANCE DISORDER [None]
